FAERS Safety Report 8696938 (Version 5)
Quarter: 2012Q4

REPORT INFORMATION
  Report Type: 
  Country: US (occurrence: US)
  Receive Date: 20120801
  Receipt Date: 20121203
  Transmission Date: 20130627
  Serious: Yes (Other)
  Sender: FDA-Public Use
  Company Number: US-BAYER-2012-076170

PATIENT
  Age: 28 Year
  Sex: Male
  Weight: 87.53 kg

DRUGS (23)
  1. MAGNEVIST [Suspect]
     Indication: IMAGING PROCEDURE
     Dosage: 20 ml, ONCE
     Route: 042
     Dates: start: 20030510
  2. MAGNEVIST [Suspect]
     Indication: NUCLEAR MAGNETIC RESONANCE IMAGING BRAIN
     Dosage: 18 ml, ONCE
     Route: 042
     Dates: start: 20041123
  3. MAGNEVIST [Suspect]
     Indication: IMAGING PROCEDURE
     Dosage: UNK
     Dates: start: 20101014
  4. GADOLINIUM IN [Suspect]
     Indication: MRI ANGIOGRAPHY
     Dosage: UNK
     Dates: start: 20030115
  5. GADOLINIUM IN [Suspect]
     Indication: MRI BRAIN
     Dosage: UNK
     Dates: start: 20030513
  6. GADOLINIUM IN [Suspect]
     Indication: MRI ANGIOGRAPHY
     Dosage: UNK
     Dates: start: 20110426
  7. OMNISCAN [Suspect]
     Indication: IMAGING PROCEDURE
     Dosage: UNK
     Dates: start: 20040625
  8. OMNISCAN [Suspect]
     Indication: MRI BRAIN
     Dosage: UNK
     Dates: start: 20041004
  9. OMNISCAN [Suspect]
     Indication: MRI ANGIOGRAPHY
     Dosage: UNK
     Dates: start: 20041015
  10. OMNISCAN [Suspect]
     Indication: IMAGING PROCEDURE
     Dosage: 18 ml, ONCE
     Route: 042
     Dates: start: 20050318
  11. NEPHROVITE [VIT C,VIT H,B5,B12,B9,B3,B6,B2,B1 HCL] [Concomitant]
     Dosage: UNK UNK, QD
  12. PREDNISONE [Concomitant]
     Indication: JOINT SWELLING
     Dosage: UNK UNK, QD
  13. LEVOTHYROXINE [Concomitant]
     Indication: THYROID DISORDER
     Dosage: UNK UNK, QD
  14. CALCIUM ACETATE [Concomitant]
     Indication: PHOSPHORUS METABOLISM DISORDER
     Dosage: UNK UNK, TID
  15. ASPIRIN [Concomitant]
     Indication: THROMBOSIS PROPHYLAXIS
     Dosage: UNK UNK, QD
  16. EPOGEN [Concomitant]
     Dosage: UNK UNK, QOD
  17. ZEMPLAR [Concomitant]
     Dosage: UNK UNK, QOD
  18. RENAGEL [SEVELAMER] [Concomitant]
     Dosage: UNK UNK, TID
     Route: 048
  19. LABETALOL [Concomitant]
     Dosage: 300 mg, BID
  20. LISINOPRIL [Concomitant]
     Dosage: 20 mg, QD
  21. NORVASC [Concomitant]
     Dosage: 10 mg, PRN
  22. PHOSLO [Concomitant]
     Dosage: 667 mg, TID
  23. PRAVACHOL [Concomitant]
     Dosage: 80 mg, HS

REACTIONS (44)
  - Nephrogenic systemic fibrosis [None]
  - Fibrosis [None]
  - Deformity [None]
  - Scar [None]
  - Mobility decreased [None]
  - Skin induration [None]
  - Gait disturbance [None]
  - Oedema peripheral [None]
  - Movement disorder [None]
  - Dry skin [None]
  - Skin exfoliation [None]
  - Skin discolouration [None]
  - Skin fissures [None]
  - Skin hypertrophy [None]
  - Skin fibrosis [None]
  - Pain of skin [None]
  - Excoriation [None]
  - Musculoskeletal stiffness [None]
  - Muscular weakness [None]
  - Joint stiffness [None]
  - Joint contracture [None]
  - Joint swelling [None]
  - Joint range of motion decreased [None]
  - Morphoea [None]
  - Grip strength decreased [None]
  - Upper extremity mass [None]
  - Lower extremity mass [None]
  - Skin disorder [None]
  - Skin atrophy [None]
  - Musculoskeletal stiffness [None]
  - Emotional distress [None]
  - Musculoskeletal pain [None]
  - Musculoskeletal stiffness [None]
  - Oedema [None]
  - Pain [None]
  - General physical health deterioration [None]
  - Anxiety [None]
  - Injury [None]
  - Quality of life decreased [None]
  - Depression [None]
  - Anhedonia [None]
  - Gastritis erosive [None]
  - Fall [None]
  - Balance disorder [None]
